FAERS Safety Report 19905544 (Version 1)
Quarter: 2021Q3

REPORT INFORMATION
  Report Type: Spontaneous
  Country: US (occurrence: US)
  Receive Date: 20210930
  Receipt Date: 20210930
  Transmission Date: 20211014
  Serious: Yes (Other)
  Sender: FDA-Public Use
  Company Number: US-PFIZER INC-202101256340

PATIENT
  Age: 65 Year
  Sex: Male
  Weight: 129.3 kg

DRUGS (2)
  1. NITROSTAT [Concomitant]
     Active Substance: NITROGLYCERIN
     Dosage: 0.4 MG (UP TO MAX OF 3 DOSES)
     Route: 060
     Dates: start: 20210303
  2. TIKOSYN [Suspect]
     Active Substance: DOFETILIDE
     Indication: ATRIAL FIBRILLATION
     Dosage: 500 UG, EVERY 12 HOURS
     Route: 048
     Dates: start: 20210607

REACTIONS (5)
  - Atrial fibrillation [Unknown]
  - Tonsil cancer [Unknown]
  - Intentional product misuse [Unknown]
  - Peripheral swelling [Unknown]
  - Tonsillar disorder [Unknown]
